FAERS Safety Report 19536754 (Version 1)
Quarter: 2021Q3

REPORT INFORMATION
  Report Type: Spontaneous
  Country: US (occurrence: US)
  Receive Date: 20210713
  Receipt Date: 20210713
  Transmission Date: 20211014
  Serious: Yes (Death)
  Sender: FDA-Public Use
  Company Number: None

PATIENT
  Sex: Male
  Weight: 122.47 kg

DRUGS (7)
  1. TRELSTAR [Suspect]
     Active Substance: TRIPTORELIN PAMOATE
     Indication: PROSTATE CANCER
     Dosage: ?          OTHER FREQUENCY:Q 3 MONTH;?
     Route: 030
     Dates: start: 201712, end: 202104
  2. VELCADE [Suspect]
     Active Substance: BORTEZOMIB
  3. OMEPRAZOLE. [Suspect]
     Active Substance: OMEPRAZOLE
  4. SIMVASTATIN. [Suspect]
     Active Substance: SIMVASTATIN
  5. BICALUTAMIDE. [Suspect]
     Active Substance: BICALUTAMIDE
  6. ALLOPURINOL. [Suspect]
     Active Substance: ALLOPURINOL
  7. CALCIUM AND VIT D [Suspect]
     Active Substance: CALCIUM\VITAMIN D

REACTIONS (1)
  - Death [None]
